FAERS Safety Report 7406960-9 (Version None)
Quarter: 2011Q2

REPORT INFORMATION
  Report Type: 
  Country: None (occurrence: None)
  Receive Date: 20110411
  Receipt Date: 20110405
  Transmission Date: 20111010
  Serious: No
  Sender: FDA-Public Use
  Company Number: US-PFIZER INC-2011053727

PATIENT
  Sex: Male
  Weight: 88.435 kg

DRUGS (5)
  1. ACETYLSALICYLIC ACID [Concomitant]
     Dosage: 81 MG, 1X/DAY
  2. MULTI-VITAMINS [Concomitant]
     Dosage: UNK, DAILY
  3. VIAGRA [Suspect]
     Indication: ERECTILE DYSFUNCTION
     Dosage: 100 MG, AS NEEDED
     Route: 048
     Dates: start: 20110201, end: 20110201
  4. LOSARTAN POTASSIUM AND HYDROCHLOROTHIAZIDE [Concomitant]
     Indication: HYPERTENSION
     Dosage: 50/12.5 MG, DAILY
  5. VIAGRA [Suspect]
     Dosage: 100 MG, AS NEEDED
     Route: 048
     Dates: start: 20110301, end: 20110301

REACTIONS (1)
  - DRUG INEFFECTIVE [None]
